FAERS Safety Report 6016286-6 (Version None)
Quarter: 2008Q4

REPORT INFORMATION
  Report Type: 
  Country: None (occurrence: None)
  Receive Date: 20081218
  Receipt Date: 20081202
  Transmission Date: 20090506
  Serious: Yes (Hospitalization)
  Sender: FDA-Public Use
  Company Number: KV200800826

PATIENT
  Age: 56 Year
  Sex: Male
  Weight: 76.2 kg

DRUGS (3)
  1. PROPAFENONE HYDROCHLORIDE [Suspect]
     Indication: ARRHYTHMIA
     Dosage: 150 MG, TID, ORAL
     Route: 048
     Dates: start: 20050101
  2. METOPROLOL TARTRATE [Concomitant]
  3. COUMADIN [Concomitant]

REACTIONS (7)
  - BLOOD PRESSURE DECREASED [None]
  - CARDIOVASCULAR DISORDER [None]
  - DRUG INEFFECTIVE [None]
  - ELECTROCARDIOGRAM T WAVE ABNORMAL [None]
  - HEART RATE IRREGULAR [None]
  - HYPOAESTHESIA [None]
  - PRODUCT QUALITY ISSUE [None]
